FAERS Safety Report 7964638 (Version 2)
Quarter: 2014Q1

REPORT INFORMATION
  Report Type: Spontaneous
  Country: US (occurrence: None)
  Receive Date: 20110302
  Receipt Date: 20130305
  Transmission Date: 20141002
  Serious: Yes (Other)
  Sender: FDA-Public Use
  Company Number: 163-21880-10121842

PATIENT
  Sex: 0

DRUGS (3)
  1. REVLIMID [Suspect]
     Indication: PLASMA CELL MYELOMA
     Dosage: 15MG - COHORT 1, PO; 25MG - COHORT 2, PO; 15MG - COHORT 3, PO; 25MG - COHORT 4, PO
     Route: 048
  2. PERIFOSINE [Suspect]
     Indication: PLASMA CELL MYELOMA
     Dosage: DAYS 1-21, 50MG - COHORT 1, 50MG - COHORT 2, 100MG - COHORT 3 + 4
     Route: 048
  3. DEXAMETHASONE [Suspect]
     Indication: PLASMA CELL MYELOMA
     Dosage: DAYS 1-4, 9-12, AND 17-20?20MG - COHORT 1, 20MG - COHORT 2, 40MG - COHORT 3 + 4

REACTIONS (25)
  - Hypophosphataemia [None]
  - Neutropenia [None]
  - Thrombocytopenia [None]
  - Leukopenia [None]
  - Fatigue [None]
  - Nausea [None]
  - Hyperglycaemia [None]
  - Alanine aminotransferase increased [None]
  - Aspartate aminotransferase increased [None]
  - Pain [None]
  - Oedema peripheral [None]
  - Blood urea increased [None]
  - Hyperglycaemia [None]
  - Lymphopenia [None]
  - Upper respiratory tract infection [None]
  - Diarrhoea [None]
  - Arthralgia [None]
  - Back pain [None]
  - Vomiting [None]
  - Constipation [None]
  - Dyspnoea [None]
  - Muscle spasms [None]
  - Cough [None]
  - Anaemia [None]
  - Rash [None]
